FAERS Safety Report 4354613-6 (Version None)
Quarter: 2004Q2

REPORT INFORMATION
  Report Type: 
  Country: None (occurrence: None)
  Receive Date: 20040503
  Receipt Date: 20040421
  Transmission Date: 20050107
  Serious: Yes (Hospitalization, Other)
  Sender: FDA-Public Use
  Company Number: US-SHR-04-024337

PATIENT
  Age: 49 Year
  Sex: Female

DRUGS (11)
  1. BETASERON [Suspect]
     Indication: MULTIPLE SCLEROSIS RELAPSE
     Dosage: 8 MIU, EVERY 2D, SUBCUTANEOUS
     Route: 058
     Dates: start: 20030922
  2. AMANTADINE HCL [Concomitant]
  3. PROZAC [Concomitant]
  4. ZANTAC [Concomitant]
  5. DETROL [Concomitant]
  6. SENOKOT [Concomitant]
  7. CALCIUM (CALCIUM) [Concomitant]
  8. CELEBREX [Concomitant]
  9. DARVOCET-(DEXTROPROPOXYPHENE NAPSILATE) [Concomitant]
  10. MULTIVITAMINS (RETINOL, PANTHENOL) [Concomitant]
  11. FIORICET [Concomitant]

REACTIONS (8)
  - BLOOD GLUCOSE DECREASED [None]
  - COMA [None]
  - CONDITION AGGRAVATED [None]
  - LOSS OF CONSCIOUSNESS [None]
  - MULTIPLE SCLEROSIS [None]
  - NUCLEAR MAGNETIC RESONANCE IMAGING BRAIN ABNORMAL [None]
  - SICK RELATIVE [None]
  - STRESS SYMPTOMS [None]
